FAERS Safety Report 20583479 (Version 1)
Quarter: 2022Q1

REPORT INFORMATION
  Report Type: Spontaneous
  Country: US (occurrence: US)
  Receive Date: 20220311
  Receipt Date: 20220311
  Transmission Date: 20220423
  Serious: No
  Sender: FDA-Public Use
  Company Number: US-Covis Pharma GmbH-2022COV00682

PATIENT
  Sex: Female

DRUGS (4)
  1. ALVESCO [Suspect]
     Active Substance: CICLESONIDE
     Indication: COVID-19
     Route: 065
  2. ALVESCO [Suspect]
     Active Substance: CICLESONIDE
  3. Serovent [Concomitant]
     Indication: COVID-19
  4. PREDNISONE [Concomitant]
     Active Substance: PREDNISONE
     Indication: Product used for unknown indication

REACTIONS (5)
  - Tongue discomfort [Not Recovered/Not Resolved]
  - Chapped lips [Not Recovered/Not Resolved]
  - Cough [Not Recovered/Not Resolved]
  - Oral candidiasis [Not Recovered/Not Resolved]
  - Off label use [Not Recovered/Not Resolved]
